FAERS Safety Report 15352255 (Version 1)
Quarter: 2018Q3

REPORT INFORMATION
  Report Type: Spontaneous
  Country: JP (occurrence: JP)
  Receive Date: 20180905
  Receipt Date: 20180905
  Transmission Date: 20181010
  Serious: Yes (Other)
  Sender: FDA-Public Use
  Company Number: JP-EISAI MEDICAL RESEARCH-EC-2018-044619

PATIENT
  Age: 70 Year
  Sex: Female

DRUGS (1)
  1. HALAVEN [Suspect]
     Active Substance: ERIBULIN MESYLATE
     Indication: SOFT TISSUE SARCOMA
     Route: 041
     Dates: start: 20160517, end: 20180116

REACTIONS (2)
  - Neutropenia [Recovered/Resolved]
  - Febrile neutropenia [Recovered/Resolved]

NARRATIVE: CASE EVENT DATE: 20160530
